FAERS Safety Report 11857758 (Version 1)
Quarter: 2015Q4

REPORT INFORMATION
  Report Type: Spontaneous
  Country: US (occurrence: None)
  Receive Date: 20151221
  Receipt Date: 20151221
  Transmission Date: 20160305
  Serious: Yes (Other)
  Sender: FDA-Public Use
  Company Number: None

PATIENT
  Age: 41 Year
  Sex: Female
  Weight: 68.8 kg

DRUGS (1)
  1. LIDOCAINE 5% PATCH 5% MYLAN [Suspect]
     Active Substance: LIDOCAINE
     Dosage: 2 PATCHES QD TOPICALLY
     Route: 061

REACTIONS (2)
  - Application site irritation [None]
  - Application site reaction [None]

NARRATIVE: CASE EVENT DATE: 20151211
